FAERS Safety Report 7479292-0 (Version None)
Quarter: 2011Q2

REPORT INFORMATION
  Report Type: 
  Country: None (occurrence: None)
  Receive Date: 20110513
  Receipt Date: 20110511
  Transmission Date: 20111010
  Serious: Yes (Hospitalization, Other)
  Sender: FDA-Public Use
  Company Number: JP-PFIZER INC-2011101291

PATIENT

DRUGS (3)
  1. BUCILLAMINE [Concomitant]
  2. METHOTREXATE [Concomitant]
  3. AZULFIDINE [Suspect]
     Dosage: 250 MG

REACTIONS (1)
  - GASTRIC ULCER HAEMORRHAGE [None]
